FAERS Safety Report 11324154 (Version 1)
Quarter: 2015Q3

REPORT INFORMATION
  Report Type: Spontaneous
  Country: NL (occurrence: NL)
  Receive Date: 20150730
  Receipt Date: 20150730
  Transmission Date: 20151125
  Serious: Yes (Life-Threatening)
  Sender: FDA-Public Use
  Company Number: NL-PFIZER INC-2015249053

PATIENT
  Age: 59 Year
  Sex: Female
  Weight: 99 kg

DRUGS (1)
  1. AMLODIPINE BESILATE [Suspect]
     Active Substance: AMLODIPINE BESYLATE
     Indication: HYPERTENSION
     Dosage: 5 MG, 1X/DAY
     Dates: start: 20150712, end: 20150722

REACTIONS (2)
  - Chest pain [Recovering/Resolving]
  - Cardiac disorder [Recovering/Resolving]

NARRATIVE: CASE EVENT DATE: 20150712
